FAERS Safety Report 9711824 (Version 1)
Quarter: 2013Q4

REPORT INFORMATION
  Report Type: Spontaneous
  Country: US (occurrence: None)
  Receive Date: 20131125
  Receipt Date: 20131125
  Transmission Date: 20140711
  Serious: Yes (Other)
  Sender: FDA-Public Use
  Company Number: None

PATIENT
  Age: 32 Year
  Sex: Female
  Weight: 65.77 kg

DRUGS (1)
  1. CIPRO [Suspect]
     Indication: KIDNEY INFECTION
     Dates: start: 20110201, end: 20110205

REACTIONS (8)
  - Kidney infection [None]
  - Insomnia [None]
  - Headache [None]
  - Arthralgia [None]
  - Panic attack [None]
  - Feeling abnormal [None]
  - Vitreous floaters [None]
  - Anxiety [None]
